FAERS Safety Report 6134250-3 (Version None)
Quarter: 2009Q1

REPORT INFORMATION
  Report Type: 
  Country: None (occurrence: None)
  Receive Date: 20090325
  Receipt Date: 20090311
  Transmission Date: 20090719
  Serious: Yes (Hospitalization)
  Sender: FDA-Public Use
  Company Number: DSJ-2009-01587

PATIENT
  Age: 86 Year
  Sex: Female

DRUGS (5)
  1. OLMETEC (OLMESARTAN MEDOXOMIL) (TABLET) (OLMESARTAN MEDOXOMIL) [Suspect]
     Indication: HYPERTENSION
     Dosage: 20 MG (20 MG, 1 IN 1 D) PER ORAL
     Route: 048
     Dates: start: 20070914, end: 20090108
  2. NITROL (GLYCERYL TRINITRATE) (TABLET) (GLYCERYL TRINITRATE) [Concomitant]
  3. DOGMATYL (SULPIRIDE) (TABLET) (SULPIRIDE) [Concomitant]
  4. BIO THREE (BACTERIA NOS) (BACTERIA NOS) [Concomitant]
  5. FLUITRAN (TRICHLORMETHIAZIDE) (TABLET) (TRICHLORMETHIAZIDE) [Concomitant]

REACTIONS (7)
  - ACTIVITIES OF DAILY LIVING IMPAIRED [None]
  - ANOREXIA [None]
  - DEHYDRATION [None]
  - HYPONATRAEMIA [None]
  - INAPPROPRIATE ANTIDIURETIC HORMONE SECRETION [None]
  - NASOPHARYNGITIS [None]
  - RENAL IMPAIRMENT [None]
